FAERS Safety Report 13434379 (Version 1)
Quarter: 2017Q2

REPORT INFORMATION
  Report Type: Spontaneous
  Country: US (occurrence: US)
  Receive Date: 20170413
  Receipt Date: 20170413
  Transmission Date: 20170830
  Serious: No
  Sender: FDA-Public Use
  Company Number: US-FERRINGPH-2016FE05426

PATIENT
  Sex: Male

DRUGS (2)
  1. FIRMAGON [Suspect]
     Active Substance: DEGARELIX ACETATE
     Dosage: UNK
     Route: 058
  2. FIRMAGON [Suspect]
     Active Substance: DEGARELIX ACETATE
     Indication: PRODUCT USED FOR UNKNOWN INDICATION
     Dosage: UNK
     Route: 030
     Dates: start: 20161003, end: 20161003

REACTIONS (1)
  - Incorrect route of drug administration [Unknown]

NARRATIVE: CASE EVENT DATE: 20161003
